FAERS Safety Report 5425988-1 (Version None)
Quarter: 2007Q3

REPORT INFORMATION
  Report Type: 
  Country: None (occurrence: None)
  Receive Date: 20070827
  Receipt Date: 20070814
  Transmission Date: 20080115
  Serious: Yes (Other)
  Sender: FDA-Public Use
  Company Number: AU-AMGEN-US238763

PATIENT

DRUGS (5)
  1. NEULASTA [Suspect]
     Indication: DRUG USE FOR UNKNOWN INDICATION
     Route: 065
  2. RITUXIMAB [Concomitant]
     Route: 065
  3. CYCLOPHOSPHAMIDE [Concomitant]
     Route: 065
  4. PREDNISONE TAB [Concomitant]
     Route: 065
  5. VINCRISTINE [Concomitant]

REACTIONS (4)
  - HYPOXIA [None]
  - MALAISE [None]
  - NEUTROPHIL COUNT DECREASED [None]
  - OSTEONECROSIS [None]
